FAERS Safety Report 6458605-2 (Version None)
Quarter: 2009Q4

REPORT INFORMATION
  Report Type: 
  Country: None (occurrence: None)
  Receive Date: 20091126
  Receipt Date: 20091124
  Transmission Date: 20100525
  Serious: Yes (Hospitalization)
  Sender: FDA-Public Use
  Company Number: TR-BRISTOL-MYERS SQUIBB COMPANY-14858245

PATIENT
  Age: 19 Year
  Sex: Female

DRUGS (3)
  1. ARIPIPRAZOLE [Suspect]
     Indication: SCHIZOPHRENIFORM DISORDER
     Dosage: STARTED AS 10MG/DAY.
  2. LORAZEPAM [Concomitant]
     Indication: SCHIZOPHRENIFORM DISORDER
  3. VALPROATE SODIUM [Concomitant]

REACTIONS (1)
  - MANIA [None]
